FAERS Safety Report 5066735-5 (Version None)
Quarter: 2006Q3

REPORT INFORMATION
  Report Type: 
  Country: None (occurrence: None)
  Receive Date: 20060728
  Receipt Date: 20060717
  Transmission Date: 20061208
  Serious: Yes (Death)
  Sender: FDA-Public Use
  Company Number: 2006-07-1437

PATIENT
  Sex: Male

DRUGS (1)
  1. ALBUTEROL [Suspect]
     Indication: BRONCHOSPASM
     Dosage: 2 PUFFS Q 4HR ORAL AER I
     Route: 048
     Dates: start: 20060306, end: 20060306

REACTIONS (2)
  - DYSPNOEA [None]
  - FALL [None]
